FAERS Safety Report 8389375-9 (Version None)
Quarter: 2012Q2

REPORT INFORMATION
  Report Type: 
  Country: None (occurrence: None)
  Receive Date: 20120528
  Receipt Date: 20120517
  Transmission Date: 20120825
  Serious: No
  Sender: FDA-Public Use
  Company Number: US-BAYER-2012-051830

PATIENT
  Age: 76 Year
  Sex: Female
  Weight: 71 kg

DRUGS (3)
  1. CHOLESTEROL [Concomitant]
  2. NAPROXEN SODIUM [Suspect]
     Indication: ARTHRITIS
     Dosage: 3 U, UNK
     Route: 048
     Dates: start: 20120423
  3. VITAMIN TAB [Concomitant]

REACTIONS (3)
  - DRUG INEFFECTIVE [None]
  - NO ADVERSE EVENT [None]
  - ARTHRALGIA [None]
